FAERS Safety Report 9092277 (Version 1)
Quarter: 2013Q1

REPORT INFORMATION
  Report Type: Report from Study
  Country: US (occurrence: US)
  Receive Date: 20130131
  Receipt Date: 20130131
  Transmission Date: 20140127
  Serious: Yes (Hospitalization, Other)
  Sender: FDA-Public Use
  Company Number: US-ABBOTT-12P-163-0990632-00

PATIENT
  Age: 52 Year
  Sex: Female
  Weight: 83.99 kg

DRUGS (8)
  1. HUMIRA [Suspect]
     Indication: CROHN^S DISEASE
     Dates: start: 200901, end: 201101
  2. HUMIRA [Suspect]
     Dates: start: 201207
  3. HUMIRA [Suspect]
     Dates: start: 20120927
  4. JANUVIA [Concomitant]
     Indication: PRODUCT USED FOR UNKNOWN INDICATION
     Dosage: DAILY
  5. ALPRAZOLAM [Concomitant]
     Indication: PRODUCT USED FOR UNKNOWN INDICATION
  6. VITAMINS [Concomitant]
     Indication: PRODUCT USED FOR UNKNOWN INDICATION
  7. UNKNOWN INSULIN [Concomitant]
     Indication: PRODUCT USED FOR UNKNOWN INDICATION
  8. CLONAZEPAM [Concomitant]
     Indication: PRODUCT USED FOR UNKNOWN INDICATION

REACTIONS (8)
  - Lower limb fracture [Recovering/Resolving]
  - Anxiety [Recovering/Resolving]
  - Fall [Recovering/Resolving]
  - Blood cholesterol increased [Unknown]
  - Crohn^s disease [Unknown]
  - Impaired healing [Not Recovered/Not Resolved]
  - Incision site infection [Unknown]
  - Ankle fracture [Unknown]
